FAERS Safety Report 18241084 (Version 1)
Quarter: 2020Q3

REPORT INFORMATION
  Report Type: Spontaneous
  Country: US (occurrence: US)
  Receive Date: 20200904
  Receipt Date: 20200904
  Transmission Date: 20201103
  Serious: No
  Sender: FDA-Public Use
  Company Number: None

PATIENT
  Age: 73 Year
  Sex: Female
  Weight: 41.73 kg

DRUGS (13)
  1. XPOVIO [Suspect]
     Active Substance: SELINEXOR
     Indication: PLASMA CELL MYELOMA
     Route: 048
     Dates: start: 20200804
  2. NAPROXEN 500MG [Concomitant]
     Active Substance: NAPROXEN
  3. DEXAMETHASONE 4MG [Concomitant]
     Active Substance: DEXAMETHASONE
  4. ASPIRIN 81MG [Concomitant]
     Active Substance: ASPIRIN
  5. CALCIUM CARBONATE?VITAMIN D 600/400 [Concomitant]
  6. ZOFRAN [Concomitant]
     Active Substance: ONDANSETRON HYDROCHLORIDE
  7. PANTOPRAZOLE 40MG [Concomitant]
     Active Substance: PANTOPRAZOLE SODIUM
  8. LANTUS SOLOSTAR 100UNIT/ML [Concomitant]
  9. METFORMIN 500MG [Concomitant]
     Active Substance: METFORMIN HYDROCHLORIDE
  10. PROCRIT 40000 UNIT/ML [Concomitant]
  11. LYRICA [Concomitant]
     Active Substance: PREGABALIN
  12. MARINOL 5MG [Concomitant]
  13. LIDOCAINE?PRILOCAINE 2.5%?2.5% [Concomitant]

REACTIONS (1)
  - Hyperglycaemia [None]
